FAERS Safety Report 6086446-7 (Version None)
Quarter: 2009Q1

REPORT INFORMATION
  Report Type: 
  Country: None (occurrence: None)
  Receive Date: 20090211
  Receipt Date: 20090130
  Transmission Date: 20090719
  Serious: Yes (Other)
  Sender: FDA-Public Use
  Company Number: CHNY2009JP00782

PATIENT
  Sex: Male

DRUGS (1)
  1. LAMISIL AT [Suspect]
     Indication: TINEA INFECTION
     Dosage: TOPICAL
     Route: 061
     Dates: start: 20090110, end: 20090120

REACTIONS (2)
  - GAIT DISTURBANCE [None]
  - SCROTAL SWELLING [None]
